FAERS Safety Report 19747998 (Version 2)
Quarter: 2021Q3

REPORT INFORMATION
  Report Type: Report from Study
  Country: US (occurrence: US)
  Receive Date: 20210826
  Receipt Date: 20210924
  Transmission Date: 20211014
  Serious: No
  Sender: FDA-Public Use
  Company Number: NVSC2021US192873

PATIENT
  Sex: Female

DRUGS (1)
  1. PIQRAY [Suspect]
     Active Substance: ALPELISIB
     Indication: BREAST CANCER
     Dosage: 250 MG, QD
     Route: 048

REACTIONS (3)
  - Nausea [Recovering/Resolving]
  - Abdominal discomfort [Unknown]
  - Fatigue [Recovering/Resolving]
